FAERS Safety Report 9344072 (Version 1)
Quarter: 2013Q2

REPORT INFORMATION
  Report Type: Spontaneous
  Country: PL (occurrence: PL)
  Receive Date: 20130612
  Receipt Date: 20130612
  Transmission Date: 20140414
  Serious: Yes (Life-Threatening, Hospitalization, Disabling, Other)
  Sender: FDA-Public Use
  Company Number: PL-GENZYME-POMP-1003054

PATIENT
  Age: 1 Year
  Sex: Female
  Weight: 6.3 kg

DRUGS (2)
  1. MYOZYME [Suspect]
     Indication: GLYCOGEN STORAGE DISEASE TYPE II
     Dosage: 150 UNK, Q2W
     Route: 042
     Dates: start: 20120806, end: 20130419
  2. MYOZYME [Suspect]
     Dosage: 100 UNK, Q2W
     Route: 042
     Dates: start: 20120806, end: 20130419

REACTIONS (4)
  - Acute respiratory failure [Recovered/Resolved with Sequelae]
  - Convulsion [Recovered/Resolved]
  - Pyrexia [Recovered/Resolved with Sequelae]
  - Eyelid oedema [Recovered/Resolved with Sequelae]
